FAERS Safety Report 6140906-9 (Version None)
Quarter: 2009Q2

REPORT INFORMATION
  Report Type: 
  Country: None (occurrence: None)
  Receive Date: 20090402
  Receipt Date: 20080515
  Transmission Date: 20091009
  Serious: No
  Sender: FDA-Public Use
  Company Number: US-KINGPHARMUSA00001-K200800565

PATIENT
  Sex: Female
  Weight: 71.202 kg

DRUGS (1)
  1. SKELAXIN [Suspect]
     Indication: BACK PAIN
     Dosage: 800 MG EVERY EIGHT HOURS
     Route: 048
     Dates: start: 20080503, end: 20080505

REACTIONS (2)
  - CONSTIPATION [None]
  - DRUG INEFFECTIVE [None]
